FAERS Safety Report 24537758 (Version 3)
Quarter: 2024Q4

REPORT INFORMATION
  Report Type: Spontaneous
  Country: JP (occurrence: JP)
  Receive Date: 20241023
  Receipt Date: 20241202
  Transmission Date: 20250115
  Serious: No
  Sender: JOHNSON AND JOHNSON
  Company Number: JP-JNJFOC-20241055258

PATIENT
  Age: 3 Year

DRUGS (2)
  1. OPSUMIT [Suspect]
     Active Substance: MACITENTAN
     Indication: Pulmonary hypertension
     Route: 048
     Dates: start: 20241016, end: 2024
  2. ADCIRCA [Concomitant]
     Active Substance: TADALAFIL
     Dosage: DOSE UNKNOWN
     Route: 048
     Dates: start: 20241016, end: 2024

REACTIONS (1)
  - Off label use [Unknown]

NARRATIVE: CASE EVENT DATE: 20241016
